FAERS Safety Report 24836958 (Version 1)
Quarter: 2025Q1

REPORT INFORMATION
  Report Type: Spontaneous
  Country: US (occurrence: US)
  Receive Date: 20250113
  Receipt Date: 20250113
  Transmission Date: 20250409
  Serious: No
  Sender: LEO PHARM
  Company Number: US-LEO Pharma-376787

PATIENT
  Age: 61 Year
  Sex: Female

DRUGS (1)
  1. ADBRY [Suspect]
     Active Substance: TRALOKINUMAB-LDRM
     Indication: Dermatitis atopic
     Dosage: TREATMENT IS ONGOING??EXPIRATION DATE: 03/31/2027
     Route: 058
     Dates: start: 202410

REACTIONS (2)
  - Injection site haemorrhage [Unknown]
  - Muscle twitching [Unknown]
